FAERS Safety Report 7905334-1 (Version None)
Quarter: 2011Q4

REPORT INFORMATION
  Report Type: 
  Country: None (occurrence: None)
  Receive Date: 20111109
  Receipt Date: 20111101
  Transmission Date: 20120403
  Serious: Yes (Hospitalization)
  Sender: FDA-Public Use
  Company Number: KR-ASTRAZENECA-2011SE66146

PATIENT
  Age: 25091 Day
  Sex: Male
  Weight: 70 kg

DRUGS (9)
  1. IMDUR SR [Concomitant]
     Dosage: TOTAL DAILY DOSE 30 MG
     Route: 048
     Dates: start: 20050214
  2. DICHLOZID [Concomitant]
     Dosage: TOTAL DAILY DOSE 25 MG
     Route: 048
     Dates: start: 20050214
  3. HERBEN [Concomitant]
     Dosage: TOTAL DAILY DOSE 90 MG
     Route: 048
     Dates: start: 20050214, end: 20050509
  4. RAMIPRIL [Concomitant]
     Dosage: TOTAL DAILY DOSE 2.5 MG
     Route: 048
     Dates: start: 20050202
  5. CRESTOR [Suspect]
     Dosage: TOTAL DAILY DOSE 10 MG
     Route: 048
     Dates: start: 20050203
  6. DIAMICRON MR [Concomitant]
     Dosage: TOTAL DAILY DOSE 25 MG
     Route: 048
     Dates: start: 20050202
  7. MAGMIL [Concomitant]
     Dosage: TOTAL DAILY DOSE 3000 MG
     Route: 048
     Dates: start: 20050214, end: 20050509
  8. RHONAL BABY [Concomitant]
     Dosage: TOTAL DAILY DOSE 100 MG
     Route: 048
     Dates: start: 20050202
  9. TRAZODONE HCL [Concomitant]
     Dosage: TOTAL DAILY DOSE 25 MG
     Route: 048
     Dates: start: 20050214, end: 20050314

REACTIONS (3)
  - POLYP COLORECTAL [None]
  - DIARRHOEA [None]
  - HYPOPHAGIA [None]
